FAERS Safety Report 19463784 (Version 1)
Quarter: 2021Q2

REPORT INFORMATION
  Report Type: Other
  Country: ES (occurrence: ES)
  Receive Date: 20210625
  Receipt Date: 20210625
  Transmission Date: 20210717
  Serious: Yes (Life-Threatening, Hospitalization, Other)
  Sender: FDA-Public Use
  Company Number: ES-VALIDUS PHARMACEUTICALS LLC-ES-2021VAL001273

PATIENT
  Age: 58 Year
  Sex: Female

DRUGS (2)
  1. CALCITRIOL. [Suspect]
     Active Substance: CALCITRIOL
     Indication: PRODUCT USED FOR UNKNOWN INDICATION
     Dosage: UNK
     Route: 048
     Dates: start: 20210517
  2. MASTICAL [Suspect]
     Active Substance: CALCIUM CARBONATE
     Indication: PRODUCT USED FOR UNKNOWN INDICATION
     Dosage: UNK
     Route: 065
     Dates: start: 20210517

REACTIONS (8)
  - Myalgia [Recovering/Resolving]
  - Anaphylactic reaction [Recovering/Resolving]
  - Dysphonia [Recovering/Resolving]
  - Angioedema [Recovering/Resolving]
  - Pruritus [Recovering/Resolving]
  - Arthralgia [Recovering/Resolving]
  - Urticaria [Recovering/Resolving]
  - Hypotension [Recovering/Resolving]

NARRATIVE: CASE EVENT DATE: 20210521
